FAERS Safety Report 6771886-0 (Version None)
Quarter: 2010Q2

REPORT INFORMATION
  Report Type: 
  Country: None (occurrence: None)
  Receive Date: 20100616
  Receipt Date: 20091016
  Transmission Date: 20101027
  Serious: No
  Sender: FDA-Public Use
  Company Number: US-ASTRAZENECA-2009SE20826

PATIENT
  Age: 42 Year
  Sex: Female
  Weight: 81.6 kg

DRUGS (1)
  1. ENTOCORT EC [Suspect]
     Route: 048
     Dates: start: 20090101

REACTIONS (4)
  - BONE PAIN [None]
  - FATIGUE [None]
  - IRRITABILITY [None]
  - MYALGIA [None]
